FAERS Safety Report 7880653-6 (Version None)
Quarter: 2011Q4

REPORT INFORMATION
  Report Type: 
  Country: None (occurrence: None)
  Receive Date: 20111101
  Receipt Date: 20100524
  Transmission Date: 20120403
  Serious: No
  Sender: FDA-Public Use
  Company Number: US-BAYER-201023924NA

PATIENT
  Sex: Male

DRUGS (4)
  1. AVODART [Concomitant]
     Dosage: UNK
  2. AVELOX [Suspect]
     Indication: SINUSITIS
     Dosage: 400 MG, QD
     Route: 048
     Dates: start: 20100520, end: 20100524
  3. ASPIRIN [Concomitant]
     Dosage: UNK
  4. AMLODIPINE [Concomitant]
     Dosage: UNK

REACTIONS (2)
  - NERVOUSNESS [None]
  - LIP SWELLING [None]
